FAERS Safety Report 12530070 (Version 1)
Quarter: 2016Q3

REPORT INFORMATION
  Report Type: Spontaneous
  Country: US (occurrence: None)
  Receive Date: 20160705
  Receipt Date: 20160705
  Transmission Date: 20161109
  Serious: Yes (Hospitalization)
  Sender: FDA-Public Use
  Company Number: None

PATIENT
  Age: 63 Year
  Sex: Female

DRUGS (1)
  1. AZELASTINE, 0.15 PERRIGO [Suspect]
     Active Substance: AZELASTINE
     Indication: PARANASAL SINUS DISCOMFORT
     Route: 045
     Dates: start: 20160630, end: 20160630

REACTIONS (3)
  - Exophthalmos [None]
  - Eye haemorrhage [None]
  - Conjunctival haemorrhage [None]

NARRATIVE: CASE EVENT DATE: 20160630
